FAERS Safety Report 10166262 (Version 1)
Quarter: 2014Q2

REPORT INFORMATION
  Report Type: Spontaneous
  Country: US (occurrence: US)
  Receive Date: 20140512
  Receipt Date: 20140512
  Transmission Date: 20141212
  Serious: No
  Sender: FDA-Public Use
  Company Number: US-SHIRE-US201402074

PATIENT
  Sex: Male

DRUGS (2)
  1. VYVANSE [Suspect]
     Indication: PRODUCT USED FOR UNKNOWN INDICATION
     Dosage: 20 MG, 1X/DAY:QD (ON SCHOOL DAYS)
     Route: 048
  2. VYVANSE [Suspect]
     Dosage: UNK, 1X/DAY:QD(PARTIAL CONTENTS OF 20 MG CAPSULE ON SCHOOL DAYS)
     Route: 048

REACTIONS (3)
  - Abdominal discomfort [Recovered/Resolved]
  - Product quality issue [Unknown]
  - Drug prescribing error [Unknown]
